FAERS Safety Report 12836741 (Version 2)
Quarter: 2016Q4

REPORT INFORMATION
  Report Type: Spontaneous
  Country: FI (occurrence: FI)
  Receive Date: 20161011
  Receipt Date: 20161013
  Transmission Date: 20170207
  Serious: Yes (Other)
  Sender: FDA-Public Use
  Company Number: FI-ALLERGAN-1671473US

PATIENT
  Sex: Female

DRUGS (1)
  1. ESCITALOPRAM OXALATE UNK [Suspect]
     Active Substance: ESCITALOPRAM OXALATE
     Indication: DEPRESSION

REACTIONS (7)
  - Cognitive disorder [Unknown]
  - Fatigue [Unknown]
  - Depressed mood [Unknown]
  - Irritability [Unknown]
  - Negative thoughts [Unknown]
  - Suicidal behaviour [Unknown]
  - Decreased interest [Unknown]
